FAERS Safety Report 20059695 (Version 1)
Quarter: 2021Q4

REPORT INFORMATION
  Report Type: Spontaneous
  Country: CA (occurrence: CA)
  Receive Date: 20211111
  Receipt Date: 20211111
  Transmission Date: 20220303
  Serious: Yes (Hospitalization, Other)
  Sender: FDA-Public Use
  Company Number: CA-VERTEX PHARMACEUTICALS-2021-017584

PATIENT
  Age: 16 Year
  Sex: Female

DRUGS (1)
  1. ORKAMBI [Suspect]
     Active Substance: IVACAFTOR\LUMACAFTOR
     Indication: Cystic fibrosis
     Route: 048

REACTIONS (2)
  - Pancreatitis acute [Unknown]
  - Pancreatitis relapsing [Unknown]
